FAERS Safety Report 13700024 (Version 2)
Quarter: 2017Q3

REPORT INFORMATION
  Report Type: Spontaneous
  Country: DE (occurrence: DE)
  Receive Date: 20170629
  Receipt Date: 20170728
  Transmission Date: 20171127
  Serious: Yes (Death, Life-Threatening, Hospitalization, Other)
  Sender: FDA-Public Use
  Company Number: DE-BRISTOL-MYERS SQUIBB COMPANY-BMS-2017-055389

PATIENT
  Age: 82 Year
  Sex: Male

DRUGS (2)
  1. ELIQUIS [Suspect]
     Active Substance: APIXABAN
     Indication: CEREBROVASCULAR ACCIDENT PROPHYLAXIS
     Dosage: 2.5 MG, BID
     Route: 048
     Dates: start: 20170608, end: 20170624
  2. NOVALGIN [Concomitant]
     Active Substance: METAMIZOLE SODIUM
     Indication: PAIN
     Dosage: 30 GTT, QID
     Route: 065

REACTIONS (4)
  - Pulmonary sepsis [Fatal]
  - Clotting factor transfusion [Unknown]
  - Basal ganglia haemorrhage [Fatal]
  - Hypertensive crisis [Unknown]

NARRATIVE: CASE EVENT DATE: 20170613
